FAERS Safety Report 4510554-2 (Version None)
Quarter: 2004Q4

REPORT INFORMATION
  Report Type: 
  Country: None (occurrence: None)
  Receive Date: 20041122
  Receipt Date: 20041110
  Transmission Date: 20050328
  Serious: Yes (Other)
  Sender: FDA-Public Use
  Company Number: 2004092968

PATIENT
  Age: 30 Year
  Sex: Female
  Weight: 63.5036 kg

DRUGS (2)
  1. DEPO-PROVERA [Suspect]
     Indication: ILL-DEFINED DISORDER
     Dosage: 150 MG (150 MG, 1ST INJECTION), INTRAMUSCULAR
     Route: 030
     Dates: start: 20030130, end: 20030130
  2. DEPO-PROVERA [Suspect]
     Indication: ILL-DEFINED DISORDER
     Dosage: 150 MG (150 MG, 1ST INJECTION), INTRAMUSCULAR
     Route: 030
     Dates: start: 20040825, end: 20040825

REACTIONS (1)
  - GOITRE [None]
